FAERS Safety Report 26130741 (Version 1)
Quarter: 2025Q4

REPORT INFORMATION
  Report Type: Spontaneous
  Country: US (occurrence: None)
  Receive Date: 20251208
  Receipt Date: 20251208
  Transmission Date: 20260117
  Serious: No
  Sender: FDA-CTU
  Company Number: None

PATIENT
  Age: 60 Year
  Sex: Male

DRUGS (1)
  1. WARFARIN SODIUM [Suspect]
     Active Substance: WARFARIN SODIUM
     Indication: Cardiac valve prosthesis user
     Dates: start: 20251003

REACTIONS (3)
  - Haematoma muscle [None]
  - Tendonitis [None]
  - Symptom recurrence [None]

NARRATIVE: CASE EVENT DATE: 20251124
